FAERS Safety Report 6179350-7 (Version None)
Quarter: 2009Q2

REPORT INFORMATION
  Report Type: 
  Country: None (occurrence: None)
  Receive Date: 20090501
  Receipt Date: 20090501
  Transmission Date: 20091009
  Serious: Yes (Other)
  Sender: FDA-Public Use
  Company Number: None

PATIENT
  Age: 55 Year
  Sex: Male
  Weight: 80.4 kg

DRUGS (14)
  1. TRENDAR [Suspect]
     Indication: LYMPHOMA
     Dosage: 140 MG IV
     Route: 042
     Dates: start: 20090427
  2. TRENDAR [Suspect]
     Indication: LYMPHOMA
     Dosage: 140 MG IV
     Route: 042
     Dates: start: 20090428
  3. RITUXIMAB [Concomitant]
  4. DIPHENHYDRAMINE HCL [Concomitant]
  5. DEXAMETHASONE 4MG TAB [Concomitant]
  6. ONDANSETRON [Concomitant]
  7. ALLOPURINOL [Concomitant]
  8. ATORVASTATIN [Concomitant]
  9. CYCLOSPORINE [Concomitant]
  10. GABAPENTIN [Concomitant]
  11. IBANDRONATE SODIUM [Concomitant]
  12. LEVOTHYROXINE SODIUM [Concomitant]
  13. NIFEDIPINE [Concomitant]
  14. PREDNISONE [Concomitant]

REACTIONS (4)
  - ERYTHEMA [None]
  - INFUSION SITE EXTRAVASATION [None]
  - INFUSION SITE IRRITATION [None]
  - INFUSION SITE SWELLING [None]
